FAERS Safety Report 11809739 (Version 3)
Quarter: 2016Q1

REPORT INFORMATION
  Report Type: Spontaneous
  Country: US (occurrence: US)
  Receive Date: 20151208
  Receipt Date: 20160201
  Transmission Date: 20160525
  Serious: Yes (Death)
  Sender: FDA-Public Use
  Company Number: US-009507513-1512USA002313

PATIENT
  Sex: Female
  Weight: 73.16 kg

DRUGS (1)
  1. KEYTRUDA [Suspect]
     Active Substance: PEMBROLIZUMAB
     Indication: GASTRIC CANCER
     Dosage: 146 MG OF 2 WEEKS
     Route: 042
     Dates: start: 20150903, end: 20150924

REACTIONS (1)
  - Death [Fatal]
